FAERS Safety Report 4580387-X (Version None)
Quarter: 2005Q1

REPORT INFORMATION
  Report Type: 
  Country: None (occurrence: None)
  Receive Date: 20050127
  Receipt Date: 20041018
  Transmission Date: 20050727
  Serious: No
  Sender: FDA-Public Use
  Company Number: USA040875087

PATIENT
  Age: 9 Year
  Sex: Male
  Weight: 32 kg

DRUGS (1)
  1. STRATTERA [Suspect]
     Indication: ATTENTION DEFICIT/HYPERACTIVITY DISORDER
     Dosage: 60 MG DAY
     Dates: start: 20030701, end: 20040701

REACTIONS (3)
  - BODY HEIGHT BELOW NORMAL [None]
  - COUGH [None]
  - PRESCRIBED OVERDOSE [None]
